FAERS Safety Report 10037511 (Version 1)
Quarter: 2014Q1

REPORT INFORMATION
  Report Type: Spontaneous
  Country: US (occurrence: None)
  Receive Date: 20140325
  Receipt Date: 20140325
  Transmission Date: 20141002
  Serious: Yes (Other)
  Sender: FDA-Public Use
  Company Number: None

PATIENT
  Age: 75 Year
  Sex: Female
  Weight: 58.97 kg

DRUGS (7)
  1. PICATO (INGENOL MEBUTATE) GEL [Suspect]
     Indication: ACTINIC KERATOSIS
     Dosage: 3 UNIT DOSE TABLETS ONCE DAILY X 3 DAYS ON THE NOSE
     Dates: start: 20140205, end: 20140205
  2. LIPITOR [Concomitant]
  3. FOLIC ACID [Concomitant]
  4. VITAMIN D [Concomitant]
  5. SYNTHROID [Concomitant]
  6. LISINOPRIL [Concomitant]
  7. ASPIRIN [Concomitant]

REACTIONS (2)
  - Blister [None]
  - Nasal discomfort [None]
